FAERS Safety Report 18318239 (Version 1)
Quarter: 2020Q3

REPORT INFORMATION
  Report Type: Spontaneous
  Country: US (occurrence: US)
  Receive Date: 20200928
  Receipt Date: 20200928
  Transmission Date: 20201103
  Serious: No
  Sender: FDA-Public Use
  Company Number: US-PFIZER INC-2020366341

PATIENT
  Age: 74 Year
  Weight: 65.76 kg

DRUGS (4)
  1. DOFETILIDE. [Suspect]
     Active Substance: DOFETILIDE
     Indication: ATRIAL FIBRILLATION
     Dosage: 250 UG, 2X/DAY (10 IN THE MORNING AND 10 AT NIGHT)
  2. XANAX [Suspect]
     Active Substance: ALPRAZOLAM
     Dosage: UNK, 1X/DAY(EVERY NIGHT. JUST A QUARTER OF A PILL)
  3. DOFETILIDE. [Suspect]
     Active Substance: DOFETILIDE
     Dosage: UNK, 2X/DAY (AT 2:30 IN THE AFTERNOON, THEN AT 11 O^ CLOCK AT NIGHT)
  4. METOPROLOL TARTRATE. [Suspect]
     Active Substance: METOPROLOL TARTRATE
     Indication: ATRIAL FIBRILLATION
     Dosage: UNK, 2X/DAY (9 IN THE MORNING AND 9 AT NIGHT)

REACTIONS (5)
  - Insomnia [Recovering/Resolving]
  - Off label use [Unknown]
  - Hypertension [Recovering/Resolving]
  - Palpitations [Recovering/Resolving]
  - Product use in unapproved indication [Unknown]
